FAERS Safety Report 7993475-2 (Version None)
Quarter: 2011Q4

REPORT INFORMATION
  Report Type: 
  Country: None (occurrence: None)
  Receive Date: 20111219
  Receipt Date: 20111212
  Transmission Date: 20120403
  Serious: Yes (Other)
  Sender: FDA-Public Use
  Company Number: CHPA2011US017982

PATIENT
  Sex: Male

DRUGS (1)
  1. BENEFIBER ORANGE POWDER [Suspect]
     Dosage: UNK, UNK
     Route: 045

REACTIONS (2)
  - INCORRECT ROUTE OF DRUG ADMINISTRATION [None]
  - DEPENDENCE [None]
